FAERS Safety Report 8580837 (Version 4)
Quarter: 2012Q4

REPORT INFORMATION
  Report Type: Report from Study
  Country: US (occurrence: US)
  Receive Date: 20120525
  Receipt Date: 20121231
  Transmission Date: 20130627
  Serious: No
  Sender: FDA-Public Use
  Company Number: US-ROCHE-GNE289546

PATIENT
  Sex: Female

DRUGS (13)
  1. OMALIZUMAB [Suspect]
     Indication: ASTHMA
     Dosage: 375 mg, Q4W, date of last dose prior to SAE: 12/Feb/2010
     Route: 058
     Dates: start: 20090304
  2. OMALIZUMAB [Suspect]
     Indication: URTICARIA
     Dosage: 375 mg, Q3W
     Route: 058
     Dates: start: 20100429
  3. OMALIZUMAB [Suspect]
     Indication: HYPERSENSITIVITY
     Dosage: UNK
     Route: 058
     Dates: start: 20100821
  4. OMALIZUMAB [Suspect]
     Indication: DERMATITIS ALLERGIC
     Dosage: UNK
     Route: 058
     Dates: start: 20101021
  5. OMALIZUMAB [Suspect]
     Indication: PAPULE
  6. OMALIZUMAB [Suspect]
     Indication: ECZEMA
  7. ZYRTEC [Concomitant]
     Indication: HYPERSENSITIVITY
     Dosage: UNK
     Route: 065
  8. ADVAIR [Concomitant]
     Indication: ASTHMA
     Dosage: UNK
     Route: 065
  9. VERAMYST [Concomitant]
     Indication: HYPERSENSITIVITY
     Dosage: UNK
     Route: 065
  10. PRENATAL VITAMIN [Concomitant]
     Indication: PREGNANCY
     Dosage: UNK
     Route: 065
  11. TYLENOL [Concomitant]
     Indication: HEADACHE
     Dosage: UNK
     Route: 065
  12. EXCEDRIN (UNITED STATES) [Concomitant]
     Indication: HEADACHE
     Dosage: UNK
     Route: 065
  13. VENTOLIN INHALER [Concomitant]
     Indication: ASTHMA
     Dosage: UNK
     Route: 065

REACTIONS (1)
  - Exposure during pregnancy [Unknown]
